FAERS Safety Report 6518559-7 (Version None)
Quarter: 2009Q4

REPORT INFORMATION
  Report Type: 
  Country: None (occurrence: None)
  Receive Date: 20091227
  Receipt Date: 20091215
  Transmission Date: 20100525
  Serious: No
  Sender: FDA-Public Use
  Company Number: US-JNJFOC-20080900090

PATIENT
  Sex: Male
  Weight: 59.88 kg

DRUGS (9)
  1. DURAGESIC-100 [Suspect]
     Indication: PANCREATITIS CHRONIC
     Route: 062
  2. DURAGESIC-100 [Suspect]
     Route: 062
  3. PANCREASE MT [Concomitant]
     Indication: ENZYME SUPPLEMENTATION
     Route: 065
  4. HYDROCODONE [Concomitant]
     Indication: BREAKTHROUGH PAIN
     Route: 048
  5. CREON [Concomitant]
     Indication: PANCREATIC ENZYMES
     Route: 048
  6. KLONOPIN [Concomitant]
     Indication: ANXIETY
     Route: 048
  7. SECTRAL [Concomitant]
     Indication: HYPERTENSION
     Route: 048
  8. PERCOCET [Concomitant]
     Indication: BREAKTHROUGH PAIN
     Route: 065
  9. EFFEXOR [Concomitant]
     Indication: DEPRESSION
     Route: 065

REACTIONS (5)
  - DRUG EFFECT INCREASED [None]
  - INADEQUATE ANALGESIA [None]
  - INAPPROPRIATE SCHEDULE OF DRUG ADMINISTRATION [None]
  - THERAPEUTIC RESPONSE DECREASED [None]
  - WRONG TECHNIQUE IN DRUG USAGE PROCESS [None]
